FAERS Safety Report 9725285 (Version 1)
Quarter: 2013Q4

REPORT INFORMATION
  Report Type: Spontaneous
  Country: US (occurrence: None)
  Receive Date: 20131202
  Receipt Date: 20131202
  Transmission Date: 20140711
  Serious: Yes (Other)
  Sender: FDA-Public Use
  Company Number: None

PATIENT
  Age: 30 Year
  Sex: Female
  Weight: 102.06 kg

DRUGS (1)
  1. VIIBRYD [Suspect]
     Indication: DEPRESSION
     Dosage: 20 TWICE DAILY TAKEN BY MOUTH
     Route: 048
     Dates: start: 20131001, end: 20131123

REACTIONS (6)
  - Migraine [None]
  - Paraesthesia [None]
  - Dizziness [None]
  - Confusional state [None]
  - Eye irritation [None]
  - Feeling abnormal [None]
